FAERS Safety Report 5084338-3 (Version None)
Quarter: 2006Q3

REPORT INFORMATION
  Report Type: 
  Country: None (occurrence: None)
  Receive Date: 20060817
  Receipt Date: 20060817
  Transmission Date: 20061208
  Serious: Yes (Disabling, Other)
  Sender: FDA-Public Use
  Company Number: None

PATIENT
  Age: 39 Year
  Sex: Male
  Weight: 78 kg

DRUGS (1)
  1. ABACAVIR [Suspect]
     Indication: HIV INFECTION
     Dosage: 300 MG EVERY 12 HOURS PO
     Route: 048
     Dates: start: 20050803, end: 20050805

REACTIONS (4)
  - DYSPNOEA [None]
  - LUNG INFILTRATION [None]
  - PYREXIA [None]
  - RASH [None]
